FAERS Safety Report 13595807 (Version 1)
Quarter: 2017Q2

REPORT INFORMATION
  Report Type: Spontaneous
  Country: US (occurrence: US)
  Receive Date: 20170531
  Receipt Date: 20170531
  Transmission Date: 20170830
  Serious: No
  Sender: FDA-Public Use
  Company Number: US-JNJFOC-20170305883

PATIENT
  Age: 90 Year
  Sex: Female
  Weight: 62.14 kg

DRUGS (1)
  1. TYLENOL EXTRA STRENGTH [Suspect]
     Active Substance: ACETAMINOPHEN
     Indication: PAIN
     Dosage: EVERY OTHER DAY
     Route: 048

REACTIONS (1)
  - Inappropriate schedule of drug administration [Unknown]
